FAERS Safety Report 7229088-X (Version None)
Quarter: 2011Q1

REPORT INFORMATION
  Report Type: 
  Country: None (occurrence: None)
  Receive Date: 20110117
  Receipt Date: 20110110
  Transmission Date: 20110831
  Serious: Yes (Hospitalization)
  Sender: FDA-Public Use
  Company Number: NL-MEDIMMUNE-MEDI-0012003

PATIENT
  Sex: Female
  Weight: 5.23 kg

DRUGS (4)
  1. LEVOTHYROXINE [Concomitant]
     Dates: start: 20100101
  2. FUROSEMIDE [Concomitant]
     Dates: start: 20100101
  3. SYNAGIS [Suspect]
     Route: 030
     Dates: start: 20101120, end: 20101120
  4. SPIRONOLACTONE [Concomitant]
     Dates: start: 20100101

REACTIONS (3)
  - RESPIRATORY TRACT INFECTION VIRAL [None]
  - CARDIAC FAILURE [None]
  - SENSE OF OPPRESSION [None]
